FAERS Safety Report 6369542-6 (Version None)
Quarter: 2009Q3

REPORT INFORMATION
  Report Type: 
  Country: None (occurrence: None)
  Receive Date: 20090918
  Receipt Date: 20090901
  Transmission Date: 20100115
  Serious: Yes (Hospitalization, Other)
  Sender: FDA-Public Use
  Company Number: ZYD-09-AE-047

PATIENT
  Age: 57 Year
  Sex: Female

DRUGS (2)
  1. RIBAVIRIN [Suspect]
     Indication: HEPATITIS C
     Dosage: 1200MG, DAILY
     Dates: start: 20090109
  2. PEG-INTRON [Suspect]
     Indication: HEPATITIS C
     Dosage: 180MCG, WEEKLY, SC
     Route: 058
     Dates: start: 20090109

REACTIONS (25)
  - ALANINE AMINOTRANSFERASE INCREASED [None]
  - ARACHNOIDITIS [None]
  - AREFLEXIA [None]
  - ASPARTATE AMINOTRANSFERASE INCREASED [None]
  - BLOOD UREA INCREASED [None]
  - DECREASED APPETITE [None]
  - DYSPNOEA [None]
  - FATIGUE [None]
  - GAIT DISTURBANCE [None]
  - HAEMOGLOBIN DECREASED [None]
  - HYPERHIDROSIS [None]
  - JOINT SWELLING [None]
  - MEAN CELL HAEMOGLOBIN CONCENTRATION INCREASED [None]
  - MONOCYTE COUNT [None]
  - MONOCYTE COUNT INCREASED [None]
  - MUSCLE ATROPHY [None]
  - NAUSEA [None]
  - PAIN [None]
  - PLATELET COUNT DECREASED [None]
  - PYREXIA [None]
  - RED BLOOD CELL COUNT DECREASED [None]
  - RED CELL DISTRIBUTION WIDTH INCREASED [None]
  - SPINAL COLUMN STENOSIS [None]
  - WEIGHT INCREASED [None]
  - WHITE BLOOD CELL COUNT DECREASED [None]
